FAERS Safety Report 5927383-5 (Version None)
Quarter: 2008Q4

REPORT INFORMATION
  Report Type: 
  Country: None (occurrence: None)
  Receive Date: 20081022
  Receipt Date: 20081022
  Transmission Date: 20090506
  Serious: No
  Sender: FDA-Public Use
  Company Number: None

PATIENT
  Age: 59 Year
  Sex: Female
  Weight: 60 kg

DRUGS (2)
  1. TOPOTECAN 1 MG GSK [Suspect]
     Indication: LUNG NEOPLASM MALIGNANT
     Dates: start: 20081010, end: 20081014
  2. TOPOTECAN  0.25 MG GSK [Suspect]

REACTIONS (2)
  - CIRCUMSTANCE OR INFORMATION CAPABLE OF LEADING TO MEDICATION ERROR [None]
  - MEDICATION ERROR [None]
